FAERS Safety Report 9221826 (Version 1)
Quarter: 2013Q1

REPORT INFORMATION
  Report Type: Spontaneous
  Country: US (occurrence: None)
  Receive Date: 20120910
  Receipt Date: 20120910
  Transmission Date: 20140127
  Serious: No
  Sender: FDA-Public Use
  Company Number: 1208USA004805

PATIENT
  Sex: Female

DRUGS (1)
  1. ZIOPTAN [Suspect]
     Route: 031
     Dates: end: 20120805

REACTIONS (3)
  - Arthralgia [None]
  - Chest pain [None]
  - Headache [None]
